FAERS Safety Report 16528856 (Version 1)
Quarter: 2019Q3

REPORT INFORMATION
  Report Type: Spontaneous
  Country: US (occurrence: US)
  Receive Date: 20190703
  Receipt Date: 20190703
  Transmission Date: 20191004
  Serious: Yes (Other)
  Sender: FDA-Public Use
  Company Number: US-IMPAX LABORATORIES, LLC-2019-IPXL-01327

PATIENT
  Sex: Male

DRUGS (1)
  1. SEVELAMER CARBONATE. [Suspect]
     Active Substance: SEVELAMER CARBONATE
     Indication: BLOOD PHOSPHORUS INCREASED
     Dosage: 800 MILLIGRAM
     Route: 048

REACTIONS (5)
  - Erosive oesophagitis [Unknown]
  - Product physical issue [Unknown]
  - Drug ineffective [Unknown]
  - Dysphagia [Unknown]
  - Product substitution issue [Unknown]
